FAERS Safety Report 18794596 (Version 2)
Quarter: 2022Q2

REPORT INFORMATION
  Report Type: Spontaneous
  Country: US (occurrence: US)
  Receive Date: 20210127
  Receipt Date: 20220408
  Transmission Date: 20220721
  Serious: No
  Sender: FDA-Public Use
  Company Number: US-PFIZER INC-2019444390

PATIENT
  Age: 67 Year
  Sex: Female

DRUGS (2)
  1. LYRICA [Suspect]
     Active Substance: PREGABALIN
     Dosage: 1 DF, DAILY
  2. LYRICA [Suspect]
     Active Substance: PREGABALIN
     Dosage: 2 DF, DAILY

REACTIONS (4)
  - Malaise [Unknown]
  - Intentional product use issue [Unknown]
  - Abnormal behaviour [Unknown]
  - Nervousness [Unknown]
